FAERS Safety Report 8932076 (Version 1)
Quarter: 2012Q4

REPORT INFORMATION
  Report Type: 
  Country: CH (occurrence: CH)
  Receive Date: 20121128
  Receipt Date: 20121128
  Transmission Date: 20130627
  Serious: Yes (Hospitalization, Other)
  Sender: FDA-Public Use
  Company Number: CH-PFIZER INC-2012285244

PATIENT
  Age: 78 Year
  Sex: Female

DRUGS (5)
  1. SUTENT [Suspect]
     Indication: METASTATIC RENAL CELL CARCINOMA
     Dosage: 50 mg, 1x/day
     Route: 048
     Dates: start: 20120914, end: 20121004
  2. ATACAND [Concomitant]
     Dosage: 16 mg, 1x/day
     Route: 048
  3. ASPIRIN CARDIO [Concomitant]
     Dosage: 100 mg, 1x/day
     Route: 048
  4. TORASEM [Concomitant]
     Dosage: 2.5 mg, 1x/day
     Route: 048
  5. BILOL [Concomitant]
     Dosage: 10 mg, 1x/day
     Route: 048

REACTIONS (3)
  - Pulmonary embolism [Recovered/Resolved]
  - Retroperitoneal haemorrhage [Recovered/Resolved]
  - Thrombocytopenia [Recovered/Resolved]
